FAERS Safety Report 7314332-0 (Version None)
Quarter: 2011Q1

REPORT INFORMATION
  Report Type: 
  Country: None (occurrence: None)
  Receive Date: 20110225
  Receipt Date: 20100726
  Transmission Date: 20110831
  Serious: No
  Sender: FDA-Public Use
  Company Number: US-MYLANLABS-2010S1013294

PATIENT
  Age: 15 Year
  Sex: Male

DRUGS (4)
  1. ALLEGRA [Concomitant]
     Indication: HYPERSENSITIVITY
     Route: 048
  2. CLARAVIS [Suspect]
     Route: 048
     Dates: start: 20100501, end: 20100601
  3. CLARAVIS [Suspect]
     Indication: ACNE
     Route: 048
     Dates: start: 20100401, end: 20100501
  4. AMNESTEEM [Suspect]
     Indication: ACNE
     Route: 048
     Dates: start: 20100601, end: 20100716

REACTIONS (1)
  - DRY SKIN [None]
